FAERS Safety Report 4480383-7 (Version None)
Quarter: 2004Q4

REPORT INFORMATION
  Report Type: 
  Country: None (occurrence: None)
  Receive Date: 20041018
  Receipt Date: 20040930
  Transmission Date: 20050328
  Serious: Yes (Other)
  Sender: FDA-Public Use
  Company Number: 2004IC000543

PATIENT
  Age: 74 Year
  Sex: Male

DRUGS (18)
  1. FLUOROURACIL [Suspect]
     Indication: COLORECTAL CANCER METASTATIC
     Dosage: 400 + 3000 MG/M***2 INTRAVENOUS BOLUS
     Route: 040
     Dates: end: 20000310
  2. FLUOROURACIL [Suspect]
     Indication: COLORECTAL CANCER METASTATIC
     Dosage: 400 + 3000 MG/M***2 INTRAVENOUS BOLUS
     Route: 040
     Dates: start: 19991203
  3. OXALIPLATIN (OXALIPLATIN) [Suspect]
     Indication: COLORECTAL CANCER METASTATIC
     Dosage: 85 MG/M**2;UNKNOWN;INTRAVENOUS
     Route: 042
  4. LEUCOVORIN CALCIUM [Suspect]
     Indication: COLORECTAL CANCER METASTATIC
     Dosage: 150 MG/M**2;UNKNOWN; INTRAVENOUS
     Route: 042
  5. ALLOPURINOL [Concomitant]
  6. VALIUM [Concomitant]
  7. DOXAZOSIN MESYLATE [Concomitant]
  8. THIAMINE [Concomitant]
  9. PROPRANOLOL [Concomitant]
  10. DILTIAZEM [Concomitant]
  11. MINIPRESS [Concomitant]
  12. HEXOBENDINE [Concomitant]
  13. METOCLOPRAMIDE [Concomitant]
  14. CEPHALEXIN [Concomitant]
  15. PARACETAMOL [Concomitant]
  16. CEPHALEXIN [Concomitant]
  17. MAGNESIUM OXIDE [Concomitant]
  18. ERISPAN [Concomitant]

REACTIONS (2)
  - NEUROPATHY PERIPHERAL [None]
  - NEUROTOXICITY [None]
